FAERS Safety Report 5306137-7 (Version None)
Quarter: 2007Q2

REPORT INFORMATION
  Report Type: 
  Country: None (occurrence: None)
  Receive Date: 20070420
  Receipt Date: 20070420
  Transmission Date: 20071010
  Serious: Yes (Hospitalization)
  Sender: FDA-Public Use
  Company Number: None

PATIENT
  Age: 42 Year
  Sex: Male
  Weight: 97 kg

DRUGS (1)
  1. WARFARIN SODIUM [Suspect]
     Dosage: 7.5MG DAILY

REACTIONS (5)
  - ABDOMINAL PAIN UPPER [None]
  - FALL [None]
  - INTERNATIONAL NORMALISED RATIO INCREASED [None]
  - PULMONARY EMBOLISM [None]
  - SKIN DISCOLOURATION [None]
